FAERS Safety Report 9536431 (Version 4)
Quarter: 2014Q3

REPORT INFORMATION
  Report Type: Report from Study
  Country: PL (occurrence: PL)
  Receive Date: 20130919
  Receipt Date: 20140716
  Transmission Date: 20150326
  Serious: Yes (Death, Hospitalization)
  Sender: FDA-Public Use
  Company Number: PL-CELGENEUS-129-CCAZA-12070521

PATIENT
  Age: 86 Year
  Sex: Male
  Weight: 82 kg

DRUGS (2)
  1. AZACITIDINE INJECTABLE [Suspect]
     Active Substance: AZACITIDINE
     Dosage: 73 MILLIGRAM/SQ. METER
     Route: 058
     Dates: start: 20120425, end: 20120501
  2. AZACITIDINE INJECTABLE [Suspect]
     Active Substance: AZACITIDINE
     Indication: ACUTE MYELOID LEUKAEMIA
     Dosage: 151.5 MILLIGRAM/SQ. METER
     Route: 058
     Dates: start: 20110808, end: 20110814

REACTIONS (2)
  - Death [Fatal]
  - Pneumonia [Unknown]

NARRATIVE: CASE EVENT DATE: 20120705
